FAERS Safety Report 18068773 (Version 1)
Quarter: 2020Q3

REPORT INFORMATION
  Report Type: Report from Study
  Country: US (occurrence: US)
  Receive Date: 20200724
  Receipt Date: 20200724
  Transmission Date: 20201103
  Serious: Yes (Death)
  Sender: FDA-Public Use
  Company Number: US-ACTELION-A-NJ2019-197565

PATIENT
  Age: 65 Year
  Sex: Female

DRUGS (4)
  1. OPSUMIT [Suspect]
     Active Substance: MACITENTAN
     Indication: PULMONARY ARTERIAL HYPERTENSION
     Dosage: 10 MG, QD
     Route: 048
     Dates: start: 20190717
  2. LIDODERM [Concomitant]
     Active Substance: LIDOCAINE
  3. OXYCODONE/APAP [Concomitant]
     Active Substance: ACETAMINOPHEN\OXYCODONE HYDROCHLORIDE
  4. LIDOCAINE. [Concomitant]
     Active Substance: LIDOCAINE

REACTIONS (6)
  - Pyrexia [Not Recovered/Not Resolved]
  - Neoplasm malignant [Fatal]
  - Fatigue [Not Recovered/Not Resolved]
  - Cardiac disorder [Fatal]
  - Headache [Not Recovered/Not Resolved]
  - Influenza like illness [Not Recovered/Not Resolved]

NARRATIVE: CASE EVENT DATE: 20190717
